FAERS Safety Report 6844120-0 (Version None)
Quarter: 2010Q3

REPORT INFORMATION
  Report Type: 
  Country: None (occurrence: None)
  Receive Date: 20100715
  Receipt Date: 20100624
  Transmission Date: 20110219
  Serious: Yes (Hospitalization)
  Sender: FDA-Public Use
  Company Number: A0790011A

PATIENT
  Age: 69 Year
  Sex: Female
  Weight: 81.4 kg

DRUGS (13)
  1. AVANDIA [Suspect]
     Indication: TYPE 2 DIABETES MELLITUS
     Dosage: 4MG PER DAY
     Route: 048
     Dates: start: 20030601, end: 20070522
  2. AVANDAMET [Suspect]
     Indication: TYPE 2 DIABETES MELLITUS
     Route: 048
  3. ZOLOFT [Concomitant]
  4. GLUCOPHAGE [Concomitant]
  5. ALTACE [Concomitant]
  6. PAPAVERINE [Concomitant]
  7. ACIPHEX [Concomitant]
  8. PROTONIX [Concomitant]
  9. ALBUTEROL [Concomitant]
  10. CYMBALTA [Concomitant]
  11. ROZEREM [Concomitant]
  12. KLONOPIN [Concomitant]
  13. SYNTHROID [Concomitant]

REACTIONS (17)
  - ASTHENIA [None]
  - CARDIAC DISORDER [None]
  - CARDIAC FAILURE CONGESTIVE [None]
  - DILATATION ATRIAL [None]
  - DIZZINESS [None]
  - DRUG HYPERSENSITIVITY [None]
  - ELECTROCARDIOGRAM QT PROLONGED [None]
  - ELECTROCARDIOGRAM ST-T CHANGE [None]
  - FATIGUE [None]
  - HEADACHE [None]
  - INTRACARDIAC THROMBUS [None]
  - LEFT VENTRICULAR FAILURE [None]
  - MITRAL VALVE CALCIFICATION [None]
  - NASOPHARYNGITIS [None]
  - THROMBOSIS [None]
  - TRICUSPID VALVE INCOMPETENCE [None]
  - WHEEZING [None]
